FAERS Safety Report 4502649-4 (Version None)
Quarter: 2004Q3

REPORT INFORMATION
  Report Type: 
  Country: None (occurrence: None)
  Receive Date: 20040928
  Receipt Date: 20040604
  Transmission Date: 20050211
  Serious: No
  Sender: FDA-Public Use
  Company Number: 04P-163-0262771-00

PATIENT
  Age: 68 Year
  Sex: Female
  Weight: 79.8331 kg

DRUGS (14)
  1. HUMIRA [Suspect]
     Indication: PSORIATIC ARTHROPATHY
     Dosage: 40 MG,  1 IN 2 WK, SUBCUTANEOUS
     Route: 058
     Dates: start: 20030911, end: 20040101
  2. HUMIRA [Suspect]
     Indication: PSORIATIC ARTHROPATHY
     Dosage: 40 MG,  1 IN 2 WK, SUBCUTANEOUS
     Route: 058
     Dates: start: 20040313, end: 20040511
  3. METHOTREXATE [Concomitant]
  4. TRIAMTERNE AND HYDROCHLOROTHIAZIDE (DYAZIDE) [Concomitant]
  5. LEVOTHYROXINE SODIUM [Concomitant]
  6. OMEPRAZOLE [Concomitant]
  7. CETIRIZINE HCL [Concomitant]
  8. ESTRADIOL [Concomitant]
  9. ACETYLSALICYLIC ACID [Concomitant]
  10. HYDROCODONE [Concomitant]
  11. MULTI-VITAMINS [Concomitant]
  12. TOCOPHEROL CONCENTRATE CAP [Concomitant]
  13. ASCORBIC ACID [Concomitant]
  14. CALCIUM CITRATE [Concomitant]

REACTIONS (2)
  - DRUG INEFFECTIVE [None]
  - HEPATIC ENZYME INCREASED [None]
